FAERS Safety Report 19923327 (Version 3)
Quarter: 2021Q4

REPORT INFORMATION
  Report Type: Report from Study
  Country: US (occurrence: US)
  Receive Date: 20211005
  Receipt Date: 20211220
  Transmission Date: 20220303
  Serious: No
  Sender: FDA-Public Use
  Company Number: US-NOVARTISTESTPH-NVSC2021US226572

PATIENT
  Age: 75 Year
  Sex: Female

DRUGS (2)
  1. ENTRESTO [Suspect]
     Active Substance: SACUBITRIL\VALSARTAN
     Indication: Product used for unknown indication
     Dosage: 0.5 DF, BID (49/51 MG)
     Route: 048
     Dates: start: 20210806
  2. ENTRESTO [Suspect]
     Active Substance: SACUBITRIL\VALSARTAN
     Dosage: (24/26MG) UNKNOWN
     Route: 048

REACTIONS (2)
  - Blood pressure decreased [Unknown]
  - Wrong technique in product usage process [Unknown]
